FAERS Safety Report 9190325 (Version 3)
Quarter: 2013Q3

REPORT INFORMATION
  Report Type: Spontaneous
  Country: US (occurrence: US)
  Receive Date: 20130326
  Receipt Date: 20130717
  Transmission Date: 20140515
  Serious: Yes (Death)
  Sender: FDA-Public Use
  Company Number: US-BRISTOL-MYERS SQUIBB COMPANY-18701870

PATIENT
  Age: 53 Year
  Sex: Male

DRUGS (16)
  1. YERVOY [Suspect]
     Indication: MALIGNANT MELANOMA
     Dosage: 06NOV12,10JAN-2013
     Dates: start: 20121015
  2. DEXAMETHASONE [Concomitant]
     Dosage: TABS,SOLID?23OCT12,6NOV12,26NOV12
     Route: 048
     Dates: start: 20121023, end: 20121126
  3. DILANTIN [Concomitant]
     Route: 048
     Dates: end: 20121023
  4. PREVACID [Concomitant]
     Dosage: CAPS,SOLID,ENTERIC COATED?AS PER INSTRUCTION:20MG?23OCT12,6NOV12,26NOV12
     Route: 048
     Dates: start: 20121023, end: 20121126
  5. ALEVE [Concomitant]
     Dosage: SOLID
     Route: 048
     Dates: end: 20121023
  6. KEPPRA [Concomitant]
     Dosage: TABS,SOLID,?23OCT12,6NOV12,26NOV12
     Route: 048
     Dates: start: 20121023, end: 20121126
  7. BUSPIRONE HCL [Concomitant]
     Dosage: TABS,SOLID?23OCT12,6NOV12,26NOV12
     Route: 048
     Dates: start: 20121023, end: 20121126
  8. NORCO [Concomitant]
     Indication: PAIN
     Dosage: TABS,SOLID?23OCT12,6NOV12,26NOV12?1DF:10-325MG?FREQUENCY:TAKE 2 Q6H
     Route: 048
     Dates: start: 20121023, end: 20121126
  9. TEMAZEPAM [Concomitant]
     Dosage: TABS,SOLID?23OCT12,6NOV12,26NOV12?FREQ:TAKE 1 QHS
     Route: 048
     Dates: start: 20121023, end: 20121126
  10. TEMODAR [Concomitant]
     Dosage: CAPS,SOLID?6NOV12,26NOV12?FREQ:TAKE 1 PER DAI;Y
     Route: 048
     Dates: start: 20121106, end: 20121126
  11. ZOFRAN [Concomitant]
     Indication: NAUSEA
     Dosage: TABS,SOLID?6NOV12,26NOV12?FREQ:TAKE 1 Q8H
     Route: 048
     Dates: start: 20121106, end: 20121126
  12. LASIX [Concomitant]
     Dosage: TABS,SOLID?26NOV12
     Route: 048
     Dates: start: 20121126
  13. POTASSIUM CHLORIDE [Concomitant]
     Dosage: TABS,SOLID?26NOV12
     Route: 048
     Dates: start: 20121126
  14. FENTANYL [Concomitant]
     Dosage: PATCH:
     Route: 062
     Dates: start: 20121218, end: 20121221
  15. TESSALON [Concomitant]
     Dosage: CAPS
     Route: 048
     Dates: start: 20121231
  16. GUAIFENESIN + CODEINE [Concomitant]
     Dosage: 1DF:100-10MG/5 LIQUID?1 TEA SPOON
     Route: 048
     Dates: start: 20121231

REACTIONS (1)
  - Malignant neoplasm progression [Fatal]
